FAERS Safety Report 5664925-1 (Version None)
Quarter: 2008Q1

REPORT INFORMATION
  Report Type: 
  Country: None (occurrence: None)
  Receive Date: 20080314
  Receipt Date: 20080305
  Transmission Date: 20080703
  Serious: Yes (Other)
  Sender: FDA-Public Use
  Company Number: LB-ABBOTT-08P-093-0441354-00

PATIENT

DRUGS (1)
  1. DEPAKENE [Suspect]
     Indication: EPILEPSY
     Route: 048
     Dates: start: 20080215, end: 20080222

REACTIONS (2)
  - CONVULSION [None]
  - PARTIAL SEIZURES [None]
